FAERS Safety Report 11870795 (Version 1)
Quarter: 2015Q4

REPORT INFORMATION
  Report Type: Spontaneous
  Country: US (occurrence: US)
  Receive Date: 20151228
  Receipt Date: 20151228
  Transmission Date: 20160305
  Serious: Yes (Hospitalization, Other)
  Sender: FDA-Public Use
  Company Number: US-BAYER-2015-493612

PATIENT
  Age: 29 Year
  Sex: Male
  Weight: 68.27 kg

DRUGS (10)
  1. COUMADIN [Suspect]
     Active Substance: WARFARIN SODIUM
  2. ASACOL [Concomitant]
     Active Substance: MESALAMINE
  3. ZOFRAN [Concomitant]
     Active Substance: ONDANSETRON HYDROCHLORIDE
  4. FERROUS SULFATE [Concomitant]
     Active Substance: FERROUS SULFATE\FERROUS SULFATE, DRIED
  5. HUMIRA [Suspect]
     Active Substance: ADALIMUMAB
  6. AMOXICILLIN. [Concomitant]
     Active Substance: AMOXICILLIN
  7. PREDNISONE. [Concomitant]
     Active Substance: PREDNISONE
  8. DILAUDID [Concomitant]
     Active Substance: HYDROMORPHONE HYDROCHLORIDE
  9. ALEVE [Suspect]
     Active Substance: NAPROXEN SODIUM
     Dosage: 8 DF IN 1 DAY
     Dates: start: 20150824, end: 20150825
  10. OXYCODONE [Concomitant]
     Active Substance: OXYCODONE

REACTIONS (30)
  - Product use issue [None]
  - Pneumonitis [None]
  - Tachycardia [None]
  - Purpura fulminans [None]
  - Sunburn [None]
  - Rash [None]
  - Anaemia [None]
  - Hyperhidrosis [None]
  - Leukocytosis [None]
  - Diarrhoea [None]
  - Drug hypersensitivity [None]
  - Haemorrhagic disorder [None]
  - Gastrointestinal haemorrhage [None]
  - Skin exfoliation [None]
  - Haematochezia [None]
  - Lethargy [None]
  - Insomnia [None]
  - Purpura [None]
  - Wound [None]
  - Skin discolouration [None]
  - Pain of skin [None]
  - Urticaria [None]
  - Eschar [None]
  - Hyponatraemia [None]
  - Back pain [None]
  - Skin burning sensation [None]
  - Chills [None]
  - Feeling hot [None]
  - Hypersensitivity vasculitis [None]
  - Weight decreased [None]

NARRATIVE: CASE EVENT DATE: 2015
